FAERS Safety Report 4701805-X (Version None)
Quarter: 2005Q2

REPORT INFORMATION
  Report Type: 
  Country: None (occurrence: None)
  Receive Date: 20050627
  Receipt Date: 20050612
  Transmission Date: 20051028
  Serious: Yes (Disabling)
  Sender: FDA-Public Use
  Company Number: HQWYE375213JUN05

PATIENT
  Sex: Female

DRUGS (4)
  1. EFFEXOR XR [Suspect]
     Dosage: 75-150 MG (FREQUENCY UNSPECIFIED)
     Dates: start: 20030101, end: 20040101
  2. EFFEXOR XR [Suspect]
     Dosage: TRIED TO TAPER OFF
     Dates: start: 20040101, end: 20040101
  3. EFFEXOR XR [Suspect]
     Dosage: 75-150 MG (FREQUENCY UNSPECIFIED)
     Dates: start: 20040101, end: 20050501
  4. EFFEXOR XR [Suspect]
     Dosage: TRYING TO TAPER
     Dates: start: 20050501

REACTIONS (10)
  - AGITATION [None]
  - ANXIETY [None]
  - DISTURBANCE IN ATTENTION [None]
  - DIZZINESS [None]
  - DRUG WITHDRAWAL SYNDROME [None]
  - FEELING ABNORMAL [None]
  - MEMORY IMPAIRMENT [None]
  - NAUSEA [None]
  - NERVOUS SYSTEM DISORDER [None]
  - PALPITATIONS [None]
